FAERS Safety Report 16806984 (Version 1)
Quarter: 2019Q3

REPORT INFORMATION
  Report Type: Spontaneous
  Country: US (occurrence: US)
  Receive Date: 20190913
  Receipt Date: 20190913
  Transmission Date: 20191005
  Serious: No
  Sender: FDA-Public Use
  Company Number: US-SA-2018SA094504

PATIENT
  Age: 10 Year
  Sex: Female
  Weight: 38.5 kg

DRUGS (13)
  1. CEREZYME [Suspect]
     Active Substance: IMIGLUCERASE
     Indication: GAUCHER^S DISEASE
     Dosage: 1600 IU,QOW
     Route: 041
  2. DIPHENHYDRAMINE. [Concomitant]
     Active Substance: DIPHENHYDRAMINE
     Indication: ANAPHYLACTIC REACTION
     Dosage: 30 MG,PRN
     Route: 048
     Dates: start: 20170304
  3. HEPARIN [Concomitant]
     Active Substance: HEPARIN SODIUM
     Dosage: DOSE: 100 UN/ML AS DIRECTED
     Route: 042
     Dates: start: 20170304
  4. NORMAL SALINE [Concomitant]
     Active Substance: SODIUM CHLORIDE
     Dosage: AS DIRECTED
     Route: 042
     Dates: start: 20170304
  5. EPINEPHRINE. [Concomitant]
     Active Substance: EPINEPHRINE
     Dosage: 0.3 UNK, AS NEEDED FOR ANAPHYLAXIS
     Route: 030
     Dates: start: 20190820
  6. STERILE WATER [Concomitant]
     Active Substance: WATER
     Dosage: 0.90 %
     Route: 042
     Dates: start: 20190820
  7. EPINEPHRINE. [Concomitant]
     Active Substance: EPINEPHRINE
     Indication: ANAPHYLACTIC REACTION
     Dosage: .3 MG,PRN
     Route: 030
     Dates: start: 20170304
  8. CEREZYME [Suspect]
     Active Substance: IMIGLUCERASE
     Dosage: 2400 U, QOW
     Route: 041
     Dates: start: 20160331
  9. AMOXICILLIN. [Concomitant]
     Active Substance: AMOXICILLIN
     Dosage: 20 ML,BID
     Route: 048
     Dates: start: 20180304
  10. DIPHENHYDRAMINE. [Concomitant]
     Active Substance: DIPHENHYDRAMINE
     Dosage: 30 UNK
     Route: 048
     Dates: start: 20190820
  11. NORMAL SALINE [Concomitant]
     Active Substance: SODIUM CHLORIDE
     Dosage: 0.90 %
     Route: 042
     Dates: start: 20190820
  12. SODIUM CHLORIDE. [Concomitant]
     Active Substance: SODIUM CHLORIDE
     Dosage: 0.90 %
     Route: 042
     Dates: start: 20190820
  13. EPIPEN [Concomitant]
     Active Substance: EPINEPHRINE
     Indication: FOOD ALLERGY
     Dosage: UNK UNK,UNK
     Route: 065

REACTIONS (1)
  - Fatigue [Unknown]
